FAERS Safety Report 17040498 (Version 1)
Quarter: 2019Q4

REPORT INFORMATION
  Report Type: Spontaneous
  Country: US (occurrence: US)
  Receive Date: 20191016
  Receipt Date: 20191016
  Transmission Date: 20200122
  Serious: No
  Sender: FDA-Public Use
  Company Number: None

PATIENT
  Age: 10 Year
  Sex: Male

DRUGS (6)
  1. MERCAPTOPURINE 50MG [Suspect]
     Active Substance: MERCAPTOPURINE
  2. TYLENOL 8 [Concomitant]
  3. MERCAPTOPURINE 50MG [Suspect]
     Active Substance: MERCAPTOPURINE
     Indication: IMMUNE THROMBOCYTOPENIC PURPURA
     Dosage: ?          OTHER FREQUENCY:QPM  BED;?
     Route: 048
     Dates: start: 20180525
  4. PLACEBO [Concomitant]
     Active Substance: UNSPECIFIED INGREDIENT
  5. MULTIVITAMIN [Concomitant]
     Active Substance: VITAMINS
  6. VITAMIN D [Concomitant]
     Active Substance: VITAMIN D NOS

REACTIONS (2)
  - Memory impairment [None]
  - Product dose omission [None]

NARRATIVE: CASE EVENT DATE: 20191015
